FAERS Safety Report 7065060-0 (Version None)
Quarter: 2010Q4

REPORT INFORMATION
  Report Type: 
  Country: None (occurrence: None)
  Receive Date: 20101027
  Receipt Date: 19910901
  Transmission Date: 20110411
  Serious: Yes (Death, Hospitalization)
  Sender: FDA-Public Use
  Company Number: JP-ROCHE-910900027001

PATIENT
  Sex: Male

DRUGS (2)
  1. CANFERON-A [Suspect]
     Indication: RENAL CANCER
     Route: 030
     Dates: start: 19890912, end: 19900503
  2. ANTINEOPLASTIC [Concomitant]
     Indication: RENAL CANCER
     Route: 048
     Dates: start: 19890912, end: 19900503

REACTIONS (3)
  - DELIRIUM [None]
  - DELUSION [None]
  - ORGANISING PNEUMONIA [None]
